FAERS Safety Report 7541985-4 (Version None)
Quarter: 2011Q2

REPORT INFORMATION
  Report Type: 
  Country: None (occurrence: None)
  Receive Date: 20110606
  Receipt Date: 20110525
  Transmission Date: 20111010
  Serious: Yes (Other)
  Sender: FDA-Public Use
  Company Number: GER/GER/11/0018507

PATIENT
  Age: 26 Year
  Sex: Female
  Weight: 64 kg

DRUGS (6)
  1. VOLTAREN [Suspect]
     Indication: RHEUMATOID ARTHRITIS
     Dosage: 140 MG, 0 TO 27 GESTATIONAL WEEK, ORAL
     Route: 048
  2. IBUPROFEN [Suspect]
     Indication: RHEUMATOID ARTHRITIS
     Dosage: 600 MG, 16-22 GESTATIONAL WEEKS, ORAL
     Route: 048
  3. DECORTIN-H (PREDNISOLONE) [Suspect]
     Dosage: SEE IMAGE
     Route: 048
  4. HUMIRA [Concomitant]
  5. ACETAMINOPHEN [Concomitant]
  6. FOLIC ACID [Concomitant]

REACTIONS (4)
  - DRUG EXPOSURE DURING PREGNANCY [None]
  - PREMATURE DELIVERY [None]
  - OLIGOHYDRAMNIOS [None]
  - PREMATURE RUPTURE OF MEMBRANES [None]
